FAERS Safety Report 24533407 (Version 1)
Quarter: 2024Q4

REPORT INFORMATION
  Report Type: Spontaneous
  Country: US (occurrence: US)
  Receive Date: 20241022
  Receipt Date: 20241022
  Transmission Date: 20250115
  Serious: Yes (Other)
  Sender: MELINTA THERAPEUTICS
  Company Number: US-MELINTA THERAPEUTICS, LLC-US-MLNT-24-00113

PATIENT

DRUGS (1)
  1. VABOMERE [Suspect]
     Active Substance: MEROPENEM\VABORBACTAM
     Indication: Product used for unknown indication

REACTIONS (2)
  - Seizure [Recovered/Resolved]
  - Headache [Recovered/Resolved]
